FAERS Safety Report 6659945-4 (Version None)
Quarter: 2010Q1

REPORT INFORMATION
  Report Type: 
  Country: None (occurrence: None)
  Receive Date: 20100330
  Receipt Date: 20100325
  Transmission Date: 20100710
  Serious: Yes (Hospitalization)
  Sender: FDA-Public Use
  Company Number: US-BRISTOL-MYERS SQUIBB COMPANY-15036544

PATIENT
  Age: 36 Year
  Sex: Female
  Weight: 53 kg

DRUGS (3)
  1. IXEMPRA KIT [Suspect]
     Indication: NEOPLASM
     Dates: start: 20061003, end: 20061006
  2. ROBITUSSIN DM [Concomitant]
  3. ADVIL LIQUI-GELS [Concomitant]

REACTIONS (1)
  - FEBRILE NEUTROPENIA [None]
